FAERS Safety Report 10243289 (Version 1)
Quarter: 2014Q2

REPORT INFORMATION
  Report Type: Spontaneous
  Country: BR (occurrence: BR)
  Receive Date: 20140618
  Receipt Date: 20140618
  Transmission Date: 20141212
  Serious: Yes (Other)
  Sender: FDA-Public Use
  Company Number: PHHY2014BR074281

PATIENT
  Age: 40 Year
  Sex: Female

DRUGS (12)
  1. TRILEPTAL [Suspect]
     Dosage: 0.5 DF, DAILY
  2. LOSARTAN [Suspect]
     Dosage: UNK UKN, UNK
  3. ATENOLOL [Suspect]
     Dosage: UNK UKN, UNK
  4. RIVOTRIL [Suspect]
     Dosage: UNK UKN, UNK
  5. SIRDALUD [Suspect]
     Dosage: UNK UKN, UNK
  6. PANTOPRAZOLE [Suspect]
     Dosage: UNK UKN, UNK
  7. FLUOXETINE [Suspect]
     Dosage: UNK UKN, UNK
  8. SPIRONOLACTONE [Suspect]
     Dosage: UNK UKN, UNK
  9. MIOSAN [Suspect]
     Dosage: UNK UKN, UNK
  10. LYRICA [Suspect]
     Dosage: UNK UKN, UNK
  11. TRAMAL [Suspect]
     Dosage: UNK UKN, UNK
  12. MIRENA [Suspect]
     Dosage: UNK UKN, UNK

REACTIONS (1)
  - Angioedema [Unknown]
